FAERS Safety Report 22313311 (Version 1)
Quarter: 2023Q2

REPORT INFORMATION
  Report Type: Spontaneous
  Country: US (occurrence: US)
  Receive Date: 20230512
  Receipt Date: 20230512
  Transmission Date: 20230722
  Serious: Yes (Hospitalization, Other)
  Sender: FDA-Public Use
  Company Number: US-NOVAST LABORATORIES INC.-2023NOV000247

PATIENT
  Age: 68 Year
  Sex: Female

DRUGS (2)
  1. PHENTERMINE [Suspect]
     Active Substance: PHENTERMINE
     Indication: Weight decreased
     Dosage: 37.5 MILLIGRAM, QD
     Route: 065
  2. TOPIRAMATE [Suspect]
     Active Substance: TOPIRAMATE
     Indication: Weight decreased
     Dosage: 25 MILLIGRAM, QD
     Route: 065

REACTIONS (1)
  - Dilated cardiomyopathy [Recovering/Resolving]
